FAERS Safety Report 9718829 (Version 1)
Quarter: 2013Q4

REPORT INFORMATION
  Report Type: Spontaneous
  Country: US (occurrence: None)
  Receive Date: 20131125
  Receipt Date: 20131125
  Transmission Date: 20140711
  Serious: Yes (Other)
  Sender: FDA-Public Use
  Company Number: 2013P1021083

PATIENT
  Age: 84 Year
  Sex: Female
  Weight: 73.03 kg

DRUGS (7)
  1. LOSARTAN POTASSIUM [Suspect]
     Indication: HYPERTENSION
     Dosage: 100 MG; QD; PO
     Dates: start: 20131001
  2. AMLODIPINE [Suspect]
     Indication: HYPERTENSION
     Dates: start: 2013
  3. GENERIC PLAVIX [Concomitant]
  4. LEVOTHYROXINE [Concomitant]
  5. CELEBREX [Concomitant]
  6. DOCQLACE [Concomitant]
  7. STATIN [Concomitant]

REACTIONS (3)
  - Constipation [None]
  - Drug ineffective [None]
  - Blood pressure increased [None]
